FAERS Safety Report 11730876 (Version 1)
Quarter: 2015Q4

REPORT INFORMATION
  Report Type: Spontaneous
  Country: US (occurrence: US)
  Receive Date: 20151110
  Receipt Date: 20151110
  Transmission Date: 20160304
  Serious: No
  Sender: FDA-Public Use
  Company Number: US-ELI_LILLY_AND_COMPANY-US201112005111

PATIENT
  Sex: Female

DRUGS (2)
  1. FENTANYL. [Concomitant]
     Active Substance: FENTANYL
     Indication: PAIN
  2. FORTEO [Suspect]
     Active Substance: TERIPARATIDE
     Indication: OSTEOPOROSIS
     Dosage: UNK, QD
     Dates: start: 20111205, end: 20111209

REACTIONS (7)
  - Nervousness [Unknown]
  - Anxiety [Unknown]
  - Malaise [Unknown]
  - Tremor [Unknown]
  - Abdominal discomfort [Unknown]
  - Lip swelling [Unknown]
  - Diarrhoea [Unknown]
